FAERS Safety Report 8228715-8 (Version None)
Quarter: 2012Q1

REPORT INFORMATION
  Report Type: 
  Country: None (occurrence: None)
  Receive Date: 20120322
  Receipt Date: 20120320
  Transmission Date: 20120608
  Serious: No
  Sender: FDA-Public Use
  Company Number: US-PFIZER INC-2012072769

PATIENT
  Sex: Male

DRUGS (1)
  1. IBUPROFEN (ADVIL) [Suspect]
     Indication: HEADACHE
     Dosage: UNK
     Dates: start: 20120319

REACTIONS (5)
  - CHILLS [None]
  - OROPHARYNGEAL PAIN [None]
  - HYPOPNOEA [None]
  - PYREXIA [None]
  - VOMITING [None]
